FAERS Safety Report 4733335-3 (Version None)
Quarter: 2005Q3

REPORT INFORMATION
  Report Type: 
  Country: None (occurrence: None)
  Receive Date: 20050801
  Receipt Date: 20050801
  Transmission Date: 20060218
  Serious: Yes (Hospitalization)
  Sender: FDA-Public Use
  Company Number: None

PATIENT
  Age: 58 Year

DRUGS (10)
  1. FOSINOPRIL SODIUM [Suspect]
     Indication: HYPERTENSION
     Dates: start: 20001130
  2. KAYEXALATE [Concomitant]
  3. METOPROLOL [Concomitant]
  4. FUROSEMIDE [Concomitant]
  5. OMEPRAZOLE [Concomitant]
  6. NITROGLYCERIN [Concomitant]
  7. AMITRYPTYLINE [Concomitant]
  8. GLYBURIDE [Concomitant]
  9. SIMVASTATIN [Concomitant]
  10. ROSIGLITAZONE [Concomitant]

REACTIONS (4)
  - ASTHENIA [None]
  - HYPOKALAEMIA [None]
  - PALPITATIONS [None]
  - SYNCOPE [None]
